FAERS Safety Report 11327738 (Version 12)
Quarter: 2018Q1

REPORT INFORMATION
  Report Type: Report from Study
  Country: CA (occurrence: CA)
  Receive Date: 20150731
  Receipt Date: 20180123
  Transmission Date: 20180508
  Serious: Yes (Other)
  Sender: FDA-Public Use
  Company Number: CA-ROCHE-1608792

PATIENT
  Age: 79 Year
  Sex: Male
  Weight: 65.9 kg

DRUGS (20)
  1. DIAMICRON [Concomitant]
     Active Substance: GLICLAZIDE
  2. TAMULOSIN [Concomitant]
     Active Substance: TAMSULOSIN
  3. ESBRIET [Suspect]
     Active Substance: PIRFENIDONE
     Route: 048
     Dates: start: 20151127
  4. ESBRIET [Suspect]
     Active Substance: PIRFENIDONE
     Route: 048
     Dates: start: 20170420
  5. QUININE SULFATE. [Concomitant]
     Active Substance: QUININE SULFATE
  6. SEEBRI [Concomitant]
     Active Substance: GLYCOPYRRONIUM
  7. ROSUVASTATIN. [Concomitant]
     Active Substance: ROSUVASTATIN
  8. ACETAMINOPHEN. [Concomitant]
     Active Substance: ACETAMINOPHEN
     Dosage: AS REQUIRED
     Route: 065
  9. METFORMIN [Concomitant]
     Active Substance: METFORMIN HYDROCHLORIDE
  10. ESBRIET [Suspect]
     Active Substance: PIRFENIDONE
     Route: 048
     Dates: start: 20150617
  11. ESBRIET [Suspect]
     Active Substance: PIRFENIDONE
     Route: 048
     Dates: start: 20150624
  12. ELTROXIN [Concomitant]
     Active Substance: LEVOTHYROXINE
  13. ZYLOPRIM [Concomitant]
     Active Substance: ALLOPURINOL
  14. VITAMIN B12 [Concomitant]
     Active Substance: CYANOCOBALAMIN
  15. ASA [Concomitant]
     Active Substance: ASPIRIN
     Route: 065
  16. ESBRIET [Suspect]
     Active Substance: PIRFENIDONE
     Indication: IDIOPATHIC PULMONARY FIBROSIS
     Route: 048
     Dates: start: 20150610
  17. PANTOLOC [Concomitant]
     Active Substance: PANTOPRAZOLE SODIUM
  18. BROMOCRIPTINE [Concomitant]
     Active Substance: BROMOCRIPTINE
  19. ADVAIR HFA [Concomitant]
     Active Substance: FLUTICASONE PROPIONATE\SALMETEROL XINAFOATE
  20. ACETYLSALICYLIC ACID (EC) [Concomitant]
     Route: 065

REACTIONS (22)
  - Vomiting [Unknown]
  - Lip erythema [Not Recovered/Not Resolved]
  - Diverticulum [Unknown]
  - Hiatus hernia [Unknown]
  - Cardiomegaly [Unknown]
  - Blood creatinine decreased [Unknown]
  - Oral discomfort [Not Recovered/Not Resolved]
  - Arteriosclerosis coronary artery [Unknown]
  - Rib fracture [Recovered/Resolved]
  - Nephrolithiasis [Not Recovered/Not Resolved]
  - Erythema [Not Recovered/Not Resolved]
  - Forced vital capacity decreased [Unknown]
  - Abdominal pain upper [Not Recovered/Not Resolved]
  - Burning sensation [Not Recovered/Not Resolved]
  - Carbon monoxide diffusing capacity decreased [Unknown]
  - Pulmonary artery dilatation [Unknown]
  - Pneumonia [Not Recovered/Not Resolved]
  - Back pain [Not Recovered/Not Resolved]
  - Oxygen saturation decreased [Unknown]
  - Weight decreased [Not Recovered/Not Resolved]
  - Dehydration [Unknown]
  - Cough [Unknown]

NARRATIVE: CASE EVENT DATE: 20150610
